FAERS Safety Report 21936380 (Version 1)
Quarter: 2023Q1

REPORT INFORMATION
  Report Type: Spontaneous
  Country: IT (occurrence: IT)
  Receive Date: 20230201
  Receipt Date: 20230201
  Transmission Date: 20230418
  Serious: Yes (Life-Threatening)
  Sender: FDA-Public Use
  Company Number: None

PATIENT
  Age: 43 Year
  Sex: Female
  Weight: 67 kg

DRUGS (3)
  1. OXALIPLATIN [Suspect]
     Active Substance: OXALIPLATIN
     Indication: Gastric cancer stage IV
     Dosage: 105.91 MG, 14D (FARMACO ALLESTITO IN SACCA BAXTER LOTTO 221129J2 CON SCADENZA 31 JAN 2023)
     Route: 042
     Dates: start: 20220829, end: 20230123
  2. FLUOROURACIL [Concomitant]
     Active Substance: FLUOROURACIL
     Indication: Gastric cancer stage IV
     Dosage: 2990.4 MG, 14 DAYS (ELASTOMERO; FARMACO ALLESTITO IN SACCA BAXTER LOTTO 221125K3 CON SCADENZA 03 FEB
     Route: 042
     Dates: start: 20220829
  3. FLUOROURACIL [Concomitant]
     Active Substance: FLUOROURACIL
     Dosage: 498.4 MG, 14D (FARMACO ALLESTITO IN SACCA BAXTER LOTTO 221125K3 CON SCADENZA 03 FEB 2023)
     Route: 042
     Dates: start: 20220829

REACTIONS (3)
  - Bronchospasm [Recovered/Resolved]
  - Abdominal pain [Recovered/Resolved]
  - Erythema [Recovered/Resolved]

NARRATIVE: CASE EVENT DATE: 20230123
